FAERS Safety Report 5880069-8 (Version None)
Quarter: 2008Q3

REPORT INFORMATION
  Report Type: 
  Country: None (occurrence: None)
  Receive Date: 20080911
  Receipt Date: 20080911
  Transmission Date: 20090109
  Serious: Yes (Hospitalization)
  Sender: FDA-Public Use
  Company Number: None

PATIENT
  Sex: Female
  Weight: 61.5 kg

DRUGS (34)
  1. SORAFENIB 600 MG [Suspect]
     Indication: MALIGNANT MELANOMA
     Dosage: 200 MG, PO, Q AM
     Route: 048
  2. SORAFENIB 600 MG [Suspect]
     Dosage: 400 MG, PO, Q PM
     Route: 048
  3. ASCORBIC ACID [Concomitant]
  4. MULTI-VITAMIN [Concomitant]
  5. CALCIUM D [Concomitant]
  6. GLUCOSAMINE [Concomitant]
  7. VITAMIN E [Concomitant]
  8. COLACE [Concomitant]
  9. EVISTA [Concomitant]
  10. ZYRTEC [Concomitant]
  11. KEFLEX [Concomitant]
  12. SCOPOLAMINE [Concomitant]
  13. D5-LR [Concomitant]
  14. LOVENOX [Concomitant]
  15. CEFAZOLIN [Concomitant]
  16. DEXAMETHASONE [Concomitant]
  17. EPHEDRINE SUL CAP [Concomitant]
  18. FENTANYL [Concomitant]
  19. GLYCOPYRROLATE [Concomitant]
  20. HEPARIN [Concomitant]
  21. LIDOCAINE [Concomitant]
  22. MAZAELOPRAMIDE [Concomitant]
  23. METOPROLOL TARTRATE [Concomitant]
  24. MIDAZOLAM HCL [Concomitant]
  25. NEOSTIGMINE [Concomitant]
  26. ZOFRAN [Concomitant]
  27. PHENYLEPHRINE [Concomitant]
  28. PROPOFOL [Concomitant]
  29. PROTAMINE SULFATE [Concomitant]
  30. RANTIDINE [Concomitant]
  31. FLUORURACIL [Concomitant]
  32. DUODERM [Concomitant]
  33. CIPRO [Concomitant]
  34. LORA TAB [Concomitant]

REACTIONS (6)
  - CELLULITIS [None]
  - CHILLS [None]
  - INFECTION [None]
  - NAUSEA [None]
  - PYREXIA [None]
  - SKIN ULCER [None]
